FAERS Safety Report 17660209 (Version 1)
Quarter: 2020Q2

REPORT INFORMATION
  Report Type: Spontaneous
  Country: US (occurrence: US)
  Receive Date: 20200410
  Receipt Date: 20200410
  Transmission Date: 20200713
  Serious: No
  Sender: FDA-Public Use
  Company Number: None

PATIENT
  Age: 63 Year
  Sex: Female

DRUGS (1)
  1. ORENCIA [Suspect]
     Active Substance: ABATACEPT
     Route: 058
     Dates: start: 201811

REACTIONS (4)
  - Gait disturbance [None]
  - Knee arthroplasty [None]
  - Arthralgia [None]
  - Carpal tunnel syndrome [None]

NARRATIVE: CASE EVENT DATE: 20200410
